FAERS Safety Report 5808140-7 (Version None)
Quarter: 2008Q3

REPORT INFORMATION
  Report Type: 
  Country: None (occurrence: None)
  Receive Date: 20080708
  Receipt Date: 20080625
  Transmission Date: 20090109
  Serious: Yes (Other)
  Sender: FDA-Public Use
  Company Number: 2008S1010992

PATIENT
  Age: 27 Year
  Sex: Male

DRUGS (4)
  1. CITALOPRAM HYDROBROMIDE [Suspect]
     Indication: INTENTIONAL OVERDOSE
     Dosage: 640 MG, ORAL
     Route: 048
  2. LAMOTRIGINE [Suspect]
     Indication: INTENTIONAL OVERDOSE
     Dosage: 4500 MG ORAL
     Route: 048
  3. TREVILOR (VENLAEAXINE HYDROCHLORIDE) [Suspect]
     Indication: INTENTIONAL OVERDOSE
     Dosage: 750 MG, ORAL
     Route: 048
  4. SOLVEX /00004702/ (BROMHEXINE HYDROCHLORIDE) [Suspect]
     Indication: INTENTIONAL OVERDOSE
     Dosage: 40 MG, ORAL
     Route: 048

REACTIONS (8)
  - BLOOD CREATINE PHOSPHOKINASE INCREASED [None]
  - CONVULSION [None]
  - INTENTIONAL OVERDOSE [None]
  - RHABDOMYOLYSIS [None]
  - SOMNOLENCE [None]
  - SUICIDAL IDEATION [None]
  - TACHYCARDIA [None]
  - VOMITING [None]
